FAERS Safety Report 25035325 (Version 1)
Quarter: 2025Q1

REPORT INFORMATION
  Report Type: Report from Study
  Country: US (occurrence: US)
  Receive Date: 20250304
  Receipt Date: 20250304
  Transmission Date: 20250409
  Serious: Yes (Other)
  Sender: ALEXION PHARMACEUTICALS
  Company Number: US-AstraZeneca-CH-00815241A

PATIENT

DRUGS (1)
  1. OSIMERTINIB [Suspect]
     Active Substance: OSIMERTINIB
     Route: 065

REACTIONS (10)
  - Muscular weakness [Unknown]
  - Dysstasia [Unknown]
  - Pain [Unknown]
  - Constipation [Unknown]
  - Muscle spasms [Unknown]
  - Appetite disorder [Unknown]
  - Diarrhoea [Unknown]
  - Atrial fibrillation [Unknown]
  - Rash [Unknown]
  - Blood magnesium decreased [Unknown]
